FAERS Safety Report 26084083 (Version 1)
Quarter: 2025Q4

REPORT INFORMATION
  Report Type: Spontaneous
  Country: CA (occurrence: CA)
  Receive Date: 20251124
  Receipt Date: 20251124
  Transmission Date: 20260117
  Serious: Yes (Death, Hospitalization, Other)
  Sender: HLS THERAPEUTICS
  Company Number: CA-HLS-202503074

PATIENT
  Sex: Male

DRUGS (4)
  1. CLOZAPINE [Suspect]
     Active Substance: CLOZAPINE
     Indication: Schizophrenia
     Dosage: TABLETS DOSAGE FORM
     Route: 065
  2. PALIPERIDONE [Concomitant]
     Active Substance: PALIPERIDONE
     Dosage: 1 EVERY 1 DAYS?AMOUNT: 6 MILLIGRAM
     Route: 048
  3. PREGABALIN [Concomitant]
     Active Substance: PREGABALIN
     Dosage: 1 EVERY 1 DAYS?AMOUNT: 75 MILLIGRAM?CAPSULES DOSAGE FORM
     Route: 048
  4. DIVALPROEX SODIUM [Concomitant]
     Active Substance: DIVALPROEX SODIUM
     Dosage: 1 EVERY 1 DAYS?AMOUNT: 750 MILLIGRAM
     Route: 065

REACTIONS (2)
  - Pneumonia [Fatal]
  - Respiratory failure [Fatal]
